FAERS Safety Report 6925337-3 (Version None)
Quarter: 2010Q3

REPORT INFORMATION
  Report Type: 
  Country: None (occurrence: None)
  Receive Date: 20100816
  Receipt Date: 20100802
  Transmission Date: 20110219
  Serious: Yes (Other)
  Sender: FDA-Public Use
  Company Number: US-ELI_LILLY_AND_COMPANY-US201005006884

PATIENT
  Sex: Female

DRUGS (3)
  1. FORTEO [Suspect]
     Indication: OSTEOPOROSIS
     Dosage: 20 UG, DAILY (1/D)
     Route: 058
     Dates: start: 20090201, end: 20090401
  2. FORTEO [Suspect]
     Dosage: 20 UG, DAILY (1/D)
     Route: 058
     Dates: start: 20100301
  3. OXYGEN [Concomitant]
     Indication: CHRONIC OBSTRUCTIVE PULMONARY DISEASE

REACTIONS (8)
  - DYSPNOEA [None]
  - FATIGUE [None]
  - JOINT SWELLING [None]
  - NAUSEA [None]
  - PANCYTOPENIA [None]
  - SMALL CELL LUNG CANCER STAGE UNSPECIFIED [None]
  - THROMBOCYTOPENIA [None]
  - URINARY TRACT DISORDER [None]
